FAERS Safety Report 21999827 (Version 1)
Quarter: 2023Q1

REPORT INFORMATION
  Report Type: Spontaneous
  Country: US (occurrence: US)
  Receive Date: 20230216
  Receipt Date: 20230216
  Transmission Date: 20230418
  Serious: No
  Sender: FDA-Public Use
  Company Number: US-009507513-2302USA000274

PATIENT
  Age: 4 Year
  Sex: Male

DRUGS (10)
  1. NOXAFIL [Suspect]
     Active Substance: POSACONAZOLE
     Indication: Pulmonary mucormycosis
     Dosage: UNK
     Route: 048
  2. NOXAFIL [Suspect]
     Active Substance: POSACONAZOLE
     Indication: Mucormycosis
  3. SARGRAMOSTIM [Concomitant]
     Active Substance: SARGRAMOSTIM
     Indication: Pulmonary mucormycosis
     Dosage: 250 MICROG/ M2/DOSE DAILY WHEN ABSOLUTE NEUTROPHIL COUNT (ANC) LESS THAN 500, 100 MICROG/ M2/DOSE 3
  4. SARGRAMOSTIM [Concomitant]
     Active Substance: SARGRAMOSTIM
     Indication: Mucormycosis
  5. AMPHOTERICIN B [Concomitant]
     Active Substance: AMPHOTERICIN B
     Indication: Pulmonary mucormycosis
     Dosage: UNK
  6. AMPHOTERICIN B [Concomitant]
     Active Substance: AMPHOTERICIN B
     Indication: Mucormycosis
  7. ISAVUCONAZOLE [Concomitant]
     Active Substance: ISAVUCONAZOLE
     Indication: Pulmonary mucormycosis
     Dosage: UNK
  8. ISAVUCONAZOLE [Concomitant]
     Active Substance: ISAVUCONAZOLE
     Indication: Mucormycosis
  9. MICAFUNGIN [Concomitant]
     Active Substance: MICAFUNGIN
     Indication: Pulmonary mucormycosis
     Dosage: UNK
  10. MICAFUNGIN [Concomitant]
     Active Substance: MICAFUNGIN
     Indication: Mucormycosis

REACTIONS (2)
  - Product use in unapproved indication [Unknown]
  - Product use issue [Unknown]
